FAERS Safety Report 4512993-2 (Version None)
Quarter: 2004Q4

REPORT INFORMATION
  Report Type: 
  Country: None (occurrence: None)
  Receive Date: 20041124
  Receipt Date: 20041116
  Transmission Date: 20050328
  Serious: Yes (Other)
  Sender: FDA-Public Use
  Company Number: 234303K04USA

PATIENT
  Age: 58 Year
  Sex: Female

DRUGS (5)
  1. REBIF [Suspect]
     Indication: MULTIPLE SCLEROSIS
     Dosage: SEE IMAGE
     Dates: start: 20040809, end: 20040820
  2. REBIF [Suspect]
     Indication: MULTIPLE SCLEROSIS
     Dosage: SEE IMAGE
     Dates: start: 20040823, end: 20040823
  3. PROVIGIL [Concomitant]
  4. LIPITOR [Concomitant]
  5. TOPROL-XL [Concomitant]

REACTIONS (3)
  - ANAPHYLACTIC SHOCK [None]
  - CHOKING [None]
  - VOMITING [None]
